FAERS Safety Report 21120684 (Version 1)
Quarter: 2022Q3

REPORT INFORMATION
  Report Type: Spontaneous
  Country: IT (occurrence: IT)
  Receive Date: 20220722
  Receipt Date: 20220722
  Transmission Date: 20221027
  Serious: Yes (Hospitalization, Other)
  Sender: FDA-Public Use
  Company Number: IT-FreseniusKabi-FK202210295

PATIENT
  Age: 70 Year
  Sex: Female

DRUGS (6)
  1. LINEZOLID [Suspect]
     Active Substance: LINEZOLID
     Indication: Staphylococcal infection
     Dosage: 600 MG EVERY 12 H, 30-MIN INFUSION
     Dates: end: 20200627
  2. RIFAMPIN [Suspect]
     Active Substance: RIFAMPIN
     Indication: Staphylococcal infection
     Dosage: 600 MG/DIE
     Dates: start: 20200525, end: 20200527
  3. TIGECYCLINE [Suspect]
     Active Substance: TIGECYCLINE
     Indication: Staphylococcal infection
     Dosage: 50 MG/BID
     Dates: start: 20200525
  4. phosphomycin [Concomitant]
     Indication: Staphylococcal infection
     Dosage: 4 GR QID,
     Dates: start: 20200525
  5. CEFTAZIDIME [Concomitant]
     Active Substance: CEFTAZIDIME
     Indication: Product used for unknown indication
     Dosage: 2.5 GR THREE TIMES A DAY
  6. AVIBACTAM [Concomitant]
     Active Substance: AVIBACTAM
     Indication: Product used for unknown indication
     Dosage: 2.5 GR THREE TIMES A DAY

REACTIONS (9)
  - Condition aggravated [Unknown]
  - Lactic acidosis [Unknown]
  - Thrombocytopenia [Unknown]
  - Blood lactic acid increased [Recovering/Resolving]
  - Toxicity to various agents [Unknown]
  - Tachypnoea [Unknown]
  - Hypocapnia [Unknown]
  - Hypoglycaemia [Not Recovered/Not Resolved]
  - Mitochondrial toxicity [Unknown]

NARRATIVE: CASE EVENT DATE: 20200602
